FAERS Safety Report 19266217 (Version 1)
Quarter: 2021Q2

REPORT INFORMATION
  Report Type: Spontaneous
  Country: US (occurrence: US)
  Receive Date: 20210517
  Receipt Date: 20210517
  Transmission Date: 20210717
  Serious: Yes (Hospitalization, Other)
  Sender: FDA-Public Use
  Company Number: US-GLAXOSMITHKLINE-US2021101325

PATIENT
  Age: 49 Year
  Sex: Female
  Weight: 136.08 kg

DRUGS (1)
  1. ADVAIR DISKUS [Suspect]
     Active Substance: FLUTICASONE PROPIONATE\SALMETEROL XINAFOATE
     Indication: ASTHMA
     Dosage: 1 PUFF(S), BID

REACTIONS (3)
  - Oesophageal injury [Unknown]
  - COVID-19 [Recovered/Resolved]
  - Traumatic lung injury [Unknown]

NARRATIVE: CASE EVENT DATE: 20201009
